FAERS Safety Report 6406341-0 (Version None)
Quarter: 2009Q4

REPORT INFORMATION
  Report Type: 
  Country: None (occurrence: None)
  Receive Date: 20091019
  Receipt Date: 20091015
  Transmission Date: 20100525
  Serious: Yes (Death, Hospitalization)
  Sender: FDA-Public Use
  Company Number: PHHO2009IT12747

PATIENT
  Sex: Male
  Weight: 78 kg

DRUGS (2)
  1. STI571/CGP57148B T35717+CAPS [Suspect]
     Indication: CHORDOMA
     Dosage: 400 MG, BID
     Route: 048
     Dates: start: 20090724, end: 20090817
  2. STI571/CGP57148B T35717+CAPS [Suspect]
     Dosage: 200 MG, BID
     Dates: start: 20090818, end: 20090920

REACTIONS (4)
  - CARDIAC FAILURE [None]
  - CONCOMITANT DISEASE PROGRESSION [None]
  - FLUID RETENTION [None]
  - MYOCARDIAL ISCHAEMIA [None]
